FAERS Safety Report 12192661 (Version 1)
Quarter: 2016Q1

REPORT INFORMATION
  Report Type: Spontaneous
  Country: US (occurrence: US)
  Receive Date: 20160318
  Receipt Date: 20160318
  Transmission Date: 20160526
  Serious: Yes (Other)
  Sender: FDA-Public Use
  Company Number: US-ALEXION PHARMACEUTICALS INC-A201601786

PATIENT
  Sex: Male

DRUGS (1)
  1. SOLIRIS [Suspect]
     Active Substance: ECULIZUMAB
     Indication: PAROXYSMAL NOCTURNAL HAEMOGLOBINURIA
     Route: 042

REACTIONS (9)
  - Infusion site pain [Unknown]
  - Full blood count decreased [Unknown]
  - Back pain [Unknown]
  - Infusion site bruising [Unknown]
  - Headache [Unknown]
  - Haemolysis [Unknown]
  - Infusion site oedema [Unknown]
  - Pain in extremity [Unknown]
  - Bone pain [Unknown]
